FAERS Safety Report 7024407-1 (Version None)
Quarter: 2010Q4

REPORT INFORMATION
  Report Type: 
  Country: None (occurrence: None)
  Receive Date: 20101001
  Receipt Date: 20100928
  Transmission Date: 20110411
  Serious: Yes (Other)
  Sender: FDA-Public Use
  Company Number: AU-WYE-G06737110

PATIENT
  Age: 48 Year
  Sex: Female

DRUGS (1)
  1. EFFEXOR XR [Suspect]
     Indication: DEPRESSION
     Dosage: 75MG DAILY
     Dates: start: 20050101

REACTIONS (3)
  - BONE DENSITY DECREASED [None]
  - OSTEONECROSIS [None]
  - TOOTH EXTRACTION [None]
